FAERS Safety Report 10397688 (Version 3)
Quarter: 2015Q1

REPORT INFORMATION
  Report Type: Report from Study
  Country: CO (occurrence: CO)
  Receive Date: 20140821
  Receipt Date: 20150122
  Transmission Date: 20150720
  Serious: No
  Sender: FDA-Public Use
  Company Number: CO-AMGEN-COLSP2014046123

PATIENT
  Age: 52 Year
  Sex: Female
  Weight: 70 kg

DRUGS (4)
  1. 5 FU [Concomitant]
     Active Substance: FLUOROURACIL
     Indication: COLORECTAL CANCER METASTATIC
     Dosage: UNK
  2. VECTIBIX [Suspect]
     Active Substance: PANITUMUMAB
     Indication: COLORECTAL CANCER METASTATIC
     Dosage: 430 MG, EVERY 15 DAYS
     Route: 042
     Dates: start: 20140505
  3. FOLINIC ACID [Concomitant]
     Active Substance: LEUCOVORIN
     Indication: COLORECTAL CANCER METASTATIC
     Dosage: UNK
  4. OXALIPLATIN. [Concomitant]
     Active Substance: OXALIPLATIN
     Indication: COLORECTAL CANCER METASTATIC
     Dosage: UNK

REACTIONS (4)
  - Rash [Recovering/Resolving]
  - Pruritus [Unknown]
  - Skin exfoliation [Unknown]
  - Skin lesion [Unknown]

NARRATIVE: CASE EVENT DATE: 20140511
